FAERS Safety Report 19521735 (Version 2)
Quarter: 2021Q3

REPORT INFORMATION
  Report Type: Spontaneous
  Country: US (occurrence: US)
  Receive Date: 20210712
  Receipt Date: 20210825
  Transmission Date: 20211014
  Serious: Yes (Hospitalization, Other)
  Sender: FDA-Public Use
  Company Number: US-PFIZER INC-2021815046

PATIENT
  Age: 63 Year
  Sex: Male
  Weight: 96.15 kg

DRUGS (13)
  1. ZINC 15 [Concomitant]
     Dosage: 66 MG
  2. FISH OIL [Concomitant]
     Active Substance: FISH OIL
     Dosage: 100?150 MG
  3. KEYTRUDA [Concomitant]
     Active Substance: PEMBROLIZUMAB
     Dosage: 100 MG 4ML VIAL
  4. IMODIUM [Concomitant]
     Active Substance: LOPERAMIDE HYDROCHLORIDE
     Dosage: 2 MG
  5. COENZYME Q10 [Concomitant]
     Active Substance: DIETARY SUPPLEMENT\UBIDECARENONE
     Dosage: 100 MG
  6. INLYTA [Suspect]
     Active Substance: AXITINIB
     Indication: RENAL CELL CARCINOMA
  7. VITAMIN D 400 [Concomitant]
     Dosage: 10 MCG
  8. FLONASE ALLERGY RELIEF [Concomitant]
     Active Substance: FLUTICASONE PROPIONATE
     Dosage: UNK
  9. ALBUTEROL SULFATE HFA [Concomitant]
     Active Substance: ALBUTEROL SULFATE
     Dosage: UNK
  10. LISINOPRIL. [Concomitant]
     Active Substance: LISINOPRIL
     Dosage: 10 MG
  11. MAGNESIUM [Concomitant]
     Active Substance: MAGNESIUM
     Dosage: 100 MG
  12. INLYTA [Suspect]
     Active Substance: AXITINIB
     Indication: RENAL CANCER
     Dosage: 5 MG, 2X/DAY
     Route: 048
     Dates: start: 20210512
  13. PROMETHAZINE HCL [Concomitant]
     Active Substance: PROMETHAZINE HYDROCHLORIDE
     Dosage: 12.5 MG

REACTIONS (10)
  - Pruritus [Unknown]
  - Fatigue [Unknown]
  - Sialoadenitis [Recovering/Resolving]
  - Blood pressure increased [Unknown]
  - Hepatic enzyme increased [Unknown]
  - Rash [Recovering/Resolving]
  - Soft tissue mass [Unknown]
  - Osteomyelitis [Recovering/Resolving]
  - Dry mouth [Unknown]
  - Decreased appetite [Unknown]

NARRATIVE: CASE EVENT DATE: 2021
